FAERS Safety Report 4591600-7 (Version None)
Quarter: 2005Q1

REPORT INFORMATION
  Report Type: 
  Country: None (occurrence: None)
  Receive Date: 20050218
  Receipt Date: 20050204
  Transmission Date: 20050727
  Serious: Yes (Hospitalization, Other)
  Sender: FDA-Public Use
  Company Number: 2005BI002594

PATIENT
  Age: 51 Year
  Sex: Male

DRUGS (1)
  1. AVONEX [Suspect]
     Indication: MULTIPLE SCLEROSIS
     Dosage: 30 UG; QW; IM
     Route: 030
     Dates: start: 19991015, end: 20021201

REACTIONS (5)
  - AMNESIA [None]
  - CARDIAC ARREST [None]
  - CARDIAC INFECTION [None]
  - CEREBROVASCULAR ACCIDENT [None]
  - COMA [None]
